FAERS Safety Report 8428611-7 (Version None)
Quarter: 2012Q2

REPORT INFORMATION
  Report Type: 
  Country: None (occurrence: None)
  Receive Date: 20120606
  Receipt Date: 20120606
  Transmission Date: 20120825
  Serious: Yes (Other)
  Sender: FDA-Public Use
  Company Number: None

PATIENT
  Sex: Female
  Weight: 113.3993 kg

DRUGS (1)
  1. FUROSEMIDE [Suspect]
     Dosage: 40MG BID

REACTIONS (2)
  - NAUSEA [None]
  - ABDOMINAL PAIN UPPER [None]
